FAERS Safety Report 5199970-6 (Version None)
Quarter: 2007Q1

REPORT INFORMATION
  Report Type: 
  Country: None (occurrence: None)
  Receive Date: 20070105
  Receipt Date: 20061227
  Transmission Date: 20070707
  Serious: Yes (Other)
  Sender: FDA-Public Use
  Company Number: JP-MERCK-0612USA04100

PATIENT
  Age: 42 Year
  Sex: Male

DRUGS (5)
  1. PROPECIA [Suspect]
     Route: 048
     Dates: start: 20060301, end: 20061001
  2. ALLEGRA [Concomitant]
     Indication: SEASONAL ALLERGY
     Route: 048
     Dates: start: 20010101
  3. ALLEGRA [Concomitant]
     Indication: RHINITIS
     Route: 048
     Dates: start: 20010101
  4. TAGAMET [Concomitant]
     Indication: ABDOMINAL PAIN UPPER
     Route: 048
     Dates: start: 20010101
  5. TIMEPIDIUM BROMIDE [Concomitant]
     Route: 048

REACTIONS (2)
  - ASPARTATE AMINOTRANSFERASE INCREASED [None]
  - BLOOD CREATINE PHOSPHOKINASE INCREASED [None]
